FAERS Safety Report 23559949 (Version 1)
Quarter: 2024Q1

REPORT INFORMATION
  Report Type: Spontaneous
  Country: US (occurrence: US)
  Receive Date: 20240223
  Receipt Date: 20240223
  Transmission Date: 20240410
  Serious: Yes (Death, Other)
  Sender: FDA-Public Use
  Company Number: US-SPECGX-T202400617

PATIENT
  Age: 39 Year
  Sex: Female

DRUGS (1)
  1. FENTANYL CITRATE [Suspect]
     Active Substance: FENTANYL CITRATE
     Indication: Product used for unknown indication
     Dosage: UNK
     Route: 065

REACTIONS (20)
  - Brain death [Fatal]
  - Toxicity to various agents [Fatal]
  - Hepatotoxicity [Unknown]
  - Electrocardiogram QRS complex prolonged [Unknown]
  - Electrocardiogram QT prolonged [Unknown]
  - Endotracheal intubation [Unknown]
  - Cardioversion [Unknown]
  - Resuscitation [Unknown]
  - Acute kidney injury [Unknown]
  - Cardiac arrest [Unknown]
  - Depressed level of consciousness [Unknown]
  - Coma [Unknown]
  - Arrhythmia [Unknown]
  - Pancytopenia [Unknown]
  - Respiratory depression [Unknown]
  - Coagulopathy [Unknown]
  - Leukocytosis [Unknown]
  - Anion gap abnormal [Unknown]
  - Metabolic acidosis [Unknown]
  - Hypotension [Unknown]
